FAERS Safety Report 8206549-8 (Version None)
Quarter: 2012Q1

REPORT INFORMATION
  Report Type: 
  Country: None (occurrence: None)
  Receive Date: 20120313
  Receipt Date: 20120308
  Transmission Date: 20120608
  Serious: Yes (Other)
  Sender: FDA-Public Use
  Company Number: US-MERCK-1203USA01356

PATIENT
  Sex: Female

DRUGS (3)
  1. FOSAMAX [Suspect]
     Route: 048
     Dates: start: 19980101, end: 20040901
  2. ACTONEL [Suspect]
     Route: 065
     Dates: start: 20040901, end: 20090401
  3. FOSAMAX [Suspect]
     Route: 048
     Dates: start: 20090401, end: 20110301

REACTIONS (2)
  - FEMUR FRACTURE [None]
  - LOW TURNOVER OSTEOPATHY [None]
